FAERS Safety Report 4793432-3 (Version None)
Quarter: 2005Q4

REPORT INFORMATION
  Report Type: 
  Country: None (occurrence: None)
  Receive Date: 20051011
  Receipt Date: 20041112
  Transmission Date: 20060501
  Serious: No
  Sender: FDA-Public Use
  Company Number: US-BRISTOL-MYERS SQUIBB COMPANY-12764379

PATIENT
  Age: 57 Year
  Sex: Male
  Weight: 77 kg

DRUGS (6)
  1. GLUCOPHAGE XR [Suspect]
     Indication: DIABETES MELLITUS
     Dosage: INITIAL DOSE 500 MG DAILY IN APPROX 2000, INCREASED TO 500 MG BID IN APPROX 2003
     Route: 048
  2. GLUCOTROL XL [Concomitant]
  3. ALTACE [Concomitant]
  4. TOPROL-XL [Concomitant]
  5. PLAVIX [Concomitant]
     Dates: start: 20040101
  6. NORVASC [Concomitant]

REACTIONS (1)
  - BLOOD GLUCOSE INCREASED [None]
